FAERS Safety Report 8684483 (Version 4)
Quarter: 2013Q1

REPORT INFORMATION
  Report Type: Spontaneous
  Country: FR (occurrence: FR)
  Receive Date: 20120726
  Receipt Date: 20130320
  Transmission Date: 20140127
  Serious: Yes (Death, Other)
  Sender: FDA-Public Use
  Company Number: FR-ROCHE-1091139

PATIENT
  Sex: Male
  Weight: 73 kg

DRUGS (4)
  1. XELODA [Suspect]
     Indication: COLON CANCER
     Route: 065
  2. CLAMOXYL (AMOXICILLIN TRIHYDRATE) [Concomitant]
  3. EGERY [Concomitant]
  4. SMECTA [Concomitant]

REACTIONS (3)
  - Cardiomyopathy acute [Fatal]
  - Ventricular arrhythmia [Fatal]
  - Angina pectoris [Not Recovered/Not Resolved]
